FAERS Safety Report 13490429 (Version 1)
Quarter: 2017Q2

REPORT INFORMATION
  Report Type: Report from Study
  Country: US (occurrence: US)
  Receive Date: 20170427
  Receipt Date: 20170427
  Transmission Date: 20170830
  Serious: Yes (Hospitalization)
  Sender: FDA-Public Use
  Company Number: US-BRISTOL-MYERS SQUIBB COMPANY-BMS-2017-035209

PATIENT
  Age: 52 Year
  Sex: Female
  Weight: 78.91 kg

DRUGS (4)
  1. DEXAMETHASONE. [Suspect]
     Active Substance: DEXAMETHASONE
     Indication: PLASMA CELL MYELOMA
     Dosage: 40 MG, DAYS 1-4
     Route: 048
     Dates: start: 20161229, end: 20170206
  2. ETOPOSIDE PHOSPHATE [Suspect]
     Active Substance: ETOPOSIDE PHOSPHATE
     Indication: PLASMA CELL MYELOMA
     Dosage: 40 MG/M2, DAYS 1-4
     Route: 042
     Dates: start: 20161229, end: 20170206
  3. CISPLATIN. [Suspect]
     Active Substance: CISPLATIN
     Indication: PLASMA CELL MYELOMA
     Dosage: 10 MG/M2, DAYS 1-4
     Route: 042
     Dates: start: 20161229, end: 20170206
  4. CYCLOPHOSPHAMIDE. [Suspect]
     Active Substance: CYCLOPHOSPHAMIDE
     Indication: PLASMA CELL MYELOMA
     Dosage: 400 MG/M2, DAYS 1-4
     Route: 042
     Dates: start: 20161229, end: 20170206

REACTIONS (3)
  - Cough [Recovered/Resolved]
  - Nasal congestion [Recovered/Resolved]
  - Product use in unapproved indication [Unknown]

NARRATIVE: CASE EVENT DATE: 20170206
